FAERS Safety Report 18646575 (Version 4)
Quarter: 2021Q4

REPORT INFORMATION
  Report Type: Other
  Country: US (occurrence: US)
  Receive Date: 20201221
  Receipt Date: 20211221
  Transmission Date: 20220303
  Serious: No
  Sender: FDA-Public Use
  Company Number: US-ACORDA-ACO_166905_2020

PATIENT
  Age: 50 Year
  Sex: Female

DRUGS (5)
  1. INBRIJA [Suspect]
     Active Substance: LEVODOPA
     Indication: On and off phenomenon
     Dosage: 84 MILLIGRAM, AS NEEDED, NOT TO EXCEED 5 DOSES A DAY
     Dates: start: 20200801, end: 20201001
  2. INBRIJA [Suspect]
     Active Substance: LEVODOPA
     Indication: Parkinson^s disease
  3. RYTARY [Concomitant]
     Active Substance: CARBIDOPA\LEVODOPA
     Indication: Product used for unknown indication
     Dosage: 95 MG, 4 TIMES A DAY (7 AM, 11 AM, 3 PM AND 7 PM)
     Route: 065
  4. SINAMET [Concomitant]
     Indication: Product used for unknown indication
     Dosage: UNK
     Route: 065
  5. NEURO PATCH [Concomitant]
     Indication: Product used for unknown indication
     Dosage: UNK
     Route: 065

REACTIONS (7)
  - Therapeutic product effect delayed [Unknown]
  - Incorrect product administration duration [Unknown]
  - Parkinson^s disease [Unknown]
  - Cough [Recovered/Resolved]
  - Drug ineffective [Unknown]
  - Therapy cessation [Unknown]
  - Cough [Unknown]

NARRATIVE: CASE EVENT DATE: 20200801
